FAERS Safety Report 7015967-5 (Version None)
Quarter: 2010Q3

REPORT INFORMATION
  Report Type: 
  Country: None (occurrence: None)
  Receive Date: 20100927
  Receipt Date: 20100706
  Transmission Date: 20110219
  Serious: No
  Sender: FDA-Public Use
  Company Number: US-ASTRAZENECA-2008UW21858

PATIENT
  Age: 63 Year
  Sex: Female

DRUGS (10)
  1. ARIMIDEX [Suspect]
     Indication: BREAST CANCER
     Route: 048
     Dates: start: 20050619, end: 20100523
  2. ZOLOFT [Concomitant]
     Route: 048
  3. ELAVIL [Concomitant]
     Route: 048
  4. LASIX [Concomitant]
     Route: 048
  5. M.V.I. [Concomitant]
     Dosage: 1 TABLET DAILY
     Route: 048
  6. CALCIUM W/VITAMIN D NOS [Concomitant]
     Route: 048
  7. TRIAMTERENE AND HYDROCHLOROTHIAZIDE [Concomitant]
     Dosage: 75/50 MG DAILY
     Route: 048
  8. ASCORBIC ACID [Concomitant]
     Route: 048
  9. MAXZIDE [Concomitant]
  10. ALBUTEROL [Concomitant]

REACTIONS (6)
  - DYSPNOEA [None]
  - GAIT DISTURBANCE [None]
  - HYPOKALAEMIA [None]
  - MUSCLE SPASMS [None]
  - NEUROPATHY PERIPHERAL [None]
  - SWELLING [None]
